FAERS Safety Report 5053224-7 (Version None)
Quarter: 2006Q3

REPORT INFORMATION
  Report Type: 
  Country: None (occurrence: None)
  Receive Date: 20060712
  Receipt Date: 20060630
  Transmission Date: 20061208
  Serious: Yes (Death, Hospitalization, Other)
  Sender: FDA-Public Use
  Company Number: 163-21880-06040337

PATIENT
  Age: 56 Year
  Sex: Female

DRUGS (5)
  1. REVLIMID [Suspect]
     Indication: 5Q-SYNDROME
     Dosage: 10 MG, 3 WEEKS ON AND 1 WEEK OFF, ORAL
     Route: 048
     Dates: start: 20060201, end: 20060314
  2. REVLIMID [Suspect]
     Indication: MYELODYSPLASTIC SYNDROME
     Dosage: 10 MG, 3 WEEKS ON AND 1 WEEK OFF, ORAL
     Route: 048
     Dates: start: 20060201, end: 20060314
  3. AMICAR (AMINOCAPROPIC ACID) [Concomitant]
  4. NEUPOGEN [Concomitant]
  5. ARANESP [Concomitant]

REACTIONS (5)
  - ACUTE MYELOID LEUKAEMIA [None]
  - DISEASE PROGRESSION [None]
  - FATIGUE [None]
  - HAEMOGLOBIN DECREASED [None]
  - PNEUMONIA [None]
